FAERS Safety Report 13428581 (Version 2)
Quarter: 2018Q3

REPORT INFORMATION
  Report Type: Spontaneous
  Country: JP (occurrence: JP)
  Receive Date: 20170411
  Receipt Date: 20180824
  Transmission Date: 20181010
  Serious: Yes (Other)
  Sender: FDA-Public Use
  Company Number: JP-PFIZER INC-2017149433

PATIENT
  Age: 56 Year
  Sex: Male

DRUGS (1)
  1. RIFABUTIN. [Suspect]
     Active Substance: RIFABUTIN
     Indication: HIV INFECTION
     Dosage: UNK

REACTIONS (1)
  - Uveitis [Recovered/Resolved]
